FAERS Safety Report 4446234-1 (Version None)
Quarter: 2004Q3

REPORT INFORMATION
  Report Type: 
  Country: None (occurrence: None)
  Receive Date: 20040902
  Receipt Date: 20040823
  Transmission Date: 20050211
  Serious: Yes (Other)
  Sender: FDA-Public Use
  Company Number: 2004230157DE

PATIENT
  Age: 69 Year
  Sex: Female
  Weight: 76 kg

DRUGS (3)
  1. FARMORUBICIN (EPIRUBICIN HYDROCHLORIDE) SOLUTION, STERILE [Suspect]
     Indication: BREAST CANCER
     Dosage: 76.95 MG, CYCLIC, IV
     Route: 042
     Dates: start: 20031223, end: 20031229
  2. FLUOROURACIL [Suspect]
     Indication: BREAST CANCER
     Dosage: 641.25 MG, CYLIC, IV
     Route: 042
     Dates: start: 20031223, end: 20031229
  3. CYCLOPHOSPHAMIDE [Suspect]
     Indication: BREAST CANCER
     Dosage: 100 MG, ORAL
     Route: 048
     Dates: start: 20031223, end: 20040105

REACTIONS (2)
  - ATRIAL FIBRILLATION [None]
  - CARDIAC FAILURE [None]
